FAERS Safety Report 9054918 (Version 1)
Quarter: 2013Q1

REPORT INFORMATION
  Report Type: Spontaneous
  Country: JP (occurrence: JP)
  Receive Date: 20130208
  Receipt Date: 20130208
  Transmission Date: 20140127
  Serious: Yes (Other)
  Sender: FDA-Public Use
  Company Number: JP-PFIZER INC-2013041004

PATIENT
  Age: 8 Decade
  Sex: Female

DRUGS (1)
  1. DIFLUCAN [Suspect]
     Indication: PERITONEAL CANDIDIASIS

REACTIONS (3)
  - Off label use [Unknown]
  - Mesenteric vascular insufficiency [Unknown]
  - Blood pressure decreased [Unknown]
